FAERS Safety Report 6073314-X (Version None)
Quarter: 2009Q1

REPORT INFORMATION
  Report Type: 
  Country: None (occurrence: None)
  Receive Date: 20090211
  Receipt Date: 20090202
  Transmission Date: 20090719
  Serious: Yes (Other)
  Sender: FDA-Public Use
  Company Number: PHEH2008US10287

PATIENT
  Age: 50 Year
  Sex: Female
  Weight: 53.515 kg

DRUGS (7)
  1. RECLAST [Suspect]
     Indication: OSTEOPOROSIS
     Dosage: 5 MG, ONE TIME
     Dates: start: 20081106, end: 20081106
  2. ASPIRIN [Concomitant]
     Dosage: 81 MG, QD
  3. CALTRATE + D [Concomitant]
     Dosage: UNK
  4. SINGULAIR [Concomitant]
     Dosage: 10 MG, QD
     Route: 048
  5. MAXALT-MLT [Concomitant]
     Dosage: 10 MG AT ONSET, REPEAT 2HRS PRN
  6. NASACORT [Concomitant]
     Dosage: 55 MCG
  7. PREVACID [Concomitant]
     Dosage: 30 MG, QD
     Route: 048

REACTIONS (12)
  - ABDOMINAL DISCOMFORT [None]
  - ARTHRALGIA [None]
  - FATIGUE [None]
  - GAIT DISTURBANCE [None]
  - HYPOKINESIA [None]
  - JOINT RANGE OF MOTION DECREASED [None]
  - JOINT SWELLING [None]
  - MALAISE [None]
  - PAIN [None]
  - PYREXIA [None]
  - THROAT TIGHTNESS [None]
  - WEIGHT DECREASED [None]
